FAERS Safety Report 6250066-1 (Version None)
Quarter: 2009Q2

REPORT INFORMATION
  Report Type: 
  Country: None (occurrence: None)
  Receive Date: 20090629
  Receipt Date: 20090622
  Transmission Date: 20091009
  Serious: Yes (Death, Life-Threatening)
  Sender: FDA-Public Use
  Company Number: US-ABBOTT-09P-163-0560094-00

PATIENT
  Sex: Male

DRUGS (2)
  1. VICODIN [Suspect]
     Indication: PAIN
  2. METHADONE [Suspect]
     Indication: PAIN

REACTIONS (3)
  - DRUG INEFFECTIVE [None]
  - FEELING ABNORMAL [None]
  - OVERDOSE [None]
